FAERS Safety Report 5061215-5 (Version None)
Quarter: 2006Q3

REPORT INFORMATION
  Report Type: 
  Country: None (occurrence: None)
  Receive Date: 20060721
  Receipt Date: 20060721
  Transmission Date: 20061208
  Serious: Yes (Hospitalization)
  Sender: FDA-Public Use
  Company Number: None

PATIENT
  Age: 61 Year
  Sex: Female
  Weight: 48.8 kg

DRUGS (13)
  1. CAPECITABINE [Suspect]
     Indication: SALIVARY GLAND CANCER
     Dosage: 1300 MG BID
     Dates: start: 20060713, end: 20060719
  2. OXALIPLATIN [Suspect]
     Indication: SALIVARY GLAND CANCER
     Dosage: 191 MG Q3WK
     Dates: start: 20060712
  3. ATIVAN [Concomitant]
  4. CATRATE [Concomitant]
  5. CEPHALEXIN [Concomitant]
  6. DECADRON [Concomitant]
  7. DILAUDID [Concomitant]
  8. METHADONE HCL [Concomitant]
  9. NEURONTIN [Concomitant]
  10. OLANZAPINE [Concomitant]
  11. SYNTHROID [Concomitant]
  12. ZOFRAN [Concomitant]
  13. ZOLOFT [Concomitant]

REACTIONS (7)
  - ANAEMIA [None]
  - DEHYDRATION [None]
  - DEPRESSION [None]
  - DIARRHOEA [None]
  - FAILURE TO THRIVE [None]
  - FATIGUE [None]
  - THROMBOCYTOPENIA [None]
